FAERS Safety Report 23675525 (Version 1)
Quarter: 2024Q1

REPORT INFORMATION
  Report Type: Spontaneous
  Country: FR (occurrence: FR)
  Receive Date: 20240327
  Receipt Date: 20240327
  Transmission Date: 20240410
  Serious: Yes (Hospitalization, Other)
  Sender: FDA-Public Use
  Company Number: None

PATIENT
  Age: 59 Year
  Sex: Male
  Weight: 99 kg

DRUGS (3)
  1. ALUNBRIG [Suspect]
     Active Substance: BRIGATINIB
     Indication: Bronchial carcinoma
     Dosage: 180 MILLIGRAM, QD
     Route: 048
     Dates: start: 20231230
  2. AMITRIPTYLINE [Concomitant]
     Active Substance: AMITRIPTYLINE
     Indication: Spinal compression fracture
     Dosage: 40 MILLIGRAM/MILLILITER
     Route: 048
     Dates: start: 20231229
  3. PREGABALIN [Concomitant]
     Active Substance: PREGABALIN
     Indication: Spinal compression fracture
     Dosage: 450 MILLIGRAM, QD
     Route: 048
     Dates: start: 20231229

REACTIONS (1)
  - Cerebellar stroke [Recovered/Resolved with Sequelae]

NARRATIVE: CASE EVENT DATE: 20240201
